FAERS Safety Report 5149126-8 (Version None)
Quarter: 2006Q4

REPORT INFORMATION
  Report Type: 
  Country: None (occurrence: None)
  Receive Date: 20061113
  Receipt Date: 20060802
  Transmission Date: 20070319
  Serious: No
  Sender: FDA-Public Use
  Company Number: US-GLAXOSMITHKLINE-A0614712A

PATIENT
  Age: 69 Year
  Sex: Male

DRUGS (10)
  1. COREG [Suspect]
     Indication: DRUG USE FOR UNKNOWN INDICATION
     Route: 048
  2. PRILOSEC [Concomitant]
  3. LASIX [Concomitant]
  4. ZOLOFT [Concomitant]
  5. ALTACE [Concomitant]
  6. DIGOXIN [Concomitant]
  7. CLARITIN [Concomitant]
  8. PLAVIX [Concomitant]
  9. ZETIA [Concomitant]
  10. ASPIRIN [Concomitant]

REACTIONS (1)
  - PHOTOPHOBIA [None]
